FAERS Safety Report 5333556-5 (Version None)
Quarter: 2007Q2

REPORT INFORMATION
  Report Type: 
  Country: None (occurrence: None)
  Receive Date: 20070524
  Receipt Date: 20070514
  Transmission Date: 20071010
  Serious: Yes (Hospitalization)
  Sender: FDA-Public Use
  Company Number: CH-ABBOTT-07P-151-0367518-00

PATIENT
  Age: 60 Year
  Sex: Female

DRUGS (3)
  1. HUMIRA [Suspect]
     Indication: RHEUMATOID ARTHRITIS
     Route: 058
     Dates: start: 20031001
  2. METHOTREXATE [Concomitant]
     Indication: DRUG USE FOR UNKNOWN INDICATION
     Route: 058
  3. ACIDUM FOLICUM [Concomitant]
     Indication: DRUG USE FOR UNKNOWN INDICATION

REACTIONS (9)
  - BRONCHITIS [None]
  - CHRONIC SINUSITIS [None]
  - DISCOMFORT [None]
  - GASTROENTERITIS PROTEUS [None]
  - HAEMOPTYSIS [None]
  - MUCOSAL DISCOLOURATION [None]
  - ORAL MUCOSAL DISCOLOURATION [None]
  - RHINITIS [None]
  - SPUTUM PURULENT [None]
